FAERS Safety Report 8759335 (Version 6)
Quarter: 2016Q1

REPORT INFORMATION
  Report Type: Spontaneous
  Country: US (occurrence: US)
  Receive Date: 20120829
  Receipt Date: 20160315
  Transmission Date: 20160526
  Serious: Yes (Hospitalization, Disabling, Other)
  Sender: FDA-Public Use
  Company Number: US-009507513-1208USA009488

PATIENT
  Sex: Female
  Weight: 73.92 kg

DRUGS (4)
  1. ALENDRONATE SODIUM. [Suspect]
     Active Substance: ALENDRONATE SODIUM
     Indication: OSTEOPENIA
  2. FOSAMAX [Suspect]
     Active Substance: ALENDRONATE SODIUM
     Indication: OSTEOPOROSIS
     Dosage: 70 MG, UNKNOWN
     Route: 048
     Dates: start: 20021002, end: 20080206
  3. FOSAMAX [Suspect]
     Active Substance: ALENDRONATE SODIUM
     Indication: OSTEOPENIA
     Dosage: 70 MG, QW
     Route: 048
     Dates: start: 2005, end: 20110503
  4. ALENDRONATE SODIUM. [Suspect]
     Active Substance: ALENDRONATE SODIUM
     Indication: OSTEOPOROSIS
     Dosage: 70 MG, UNKNOWN
     Route: 048
     Dates: start: 20080304, end: 20110509

REACTIONS (15)
  - Foot deformity [Unknown]
  - Hyperlipidaemia [Unknown]
  - Middle ear effusion [Recovered/Resolved]
  - Breast cancer [Unknown]
  - Anaemia postoperative [Recovered/Resolved]
  - Heart rate irregular [Unknown]
  - Femur fracture [Recovered/Resolved]
  - Rash [Unknown]
  - Vitamin D deficiency [Unknown]
  - Hip surgery [Unknown]
  - Arthralgia [Unknown]
  - Fall [Unknown]
  - Calcium deficiency [Unknown]
  - Iliotibial band syndrome [Unknown]
  - Wrist fracture [Unknown]

NARRATIVE: CASE EVENT DATE: 2005
